FAERS Safety Report 9156633 (Version 1)
Quarter: 2013Q1

REPORT INFORMATION
  Report Type: Spontaneous
  Country: FR (occurrence: None)
  Receive Date: 20130206
  Receipt Date: 20130206
  Transmission Date: 20140127
  Serious: Yes (Other)
  Sender: FDA-Public Use
  Company Number: 2013/019

PATIENT
  Age: 15 Year
  Sex: Male

DRUGS (3)
  1. LEVETIRACETAM (NO PREF. NAME) [Suspect]
     Indication: CONVULSION
     Route: 048
  2. ONDANSETRON [Concomitant]
  3. METOPIMAZINE [Concomitant]

REACTIONS (4)
  - Toxicity to various agents [None]
  - Renal failure [None]
  - Hypertension [None]
  - Vomiting [None]
